FAERS Safety Report 19761774 (Version 1)
Quarter: 2021Q3

REPORT INFORMATION
  Report Type: Spontaneous
  Country: CA (occurrence: CA)
  Receive Date: 20210829
  Receipt Date: 20210829
  Transmission Date: 20211014
  Serious: Yes (Disabling)
  Sender: FDA-Public Use
  Company Number: None

PATIENT
  Age: 27 Year
  Sex: Female
  Weight: 58.5 kg

DRUGS (2)
  1. CLOBETASOL PROPION 0.05% [Suspect]
     Active Substance: CLOBETASOL PROPIONATE
     Dosage: ?          QUANTITY:30 G;?
     Route: 061
  2. BETAMETHASONE VAL 0.1% [Suspect]
     Active Substance: BETAMETHASONE VALERATE
     Dosage: ?          QUANTITY:30 G;?
     Route: 061

REACTIONS (12)
  - Alopecia [None]
  - Steroid dependence [None]
  - Sunburn [None]
  - Temperature regulation disorder [None]
  - Loss of personal independence in daily activities [None]
  - Eczema [None]
  - Scar [None]
  - Pain of skin [None]
  - Eye disorder [None]
  - Skin exfoliation [None]
  - Staphylococcal infection [None]
  - Fatigue [None]
